FAERS Safety Report 6769777-4 (Version None)
Quarter: 2010Q2

REPORT INFORMATION
  Report Type: 
  Country: None (occurrence: None)
  Receive Date: 20100615
  Receipt Date: 20100604
  Transmission Date: 20101027
  Serious: Yes (Hospitalization)
  Sender: FDA-Public Use
  Company Number: DE-ROCHE-708786

PATIENT
  Sex: Male
  Weight: 61.7 kg

DRUGS (13)
  1. BEVACIZUMAB [Suspect]
     Indication: NON-SMALL CELL LUNG CANCER
     Dosage: ACTUAL DOSE: 2304 MG
     Route: 065
     Dates: start: 20100211
  2. PEMETREXED [Suspect]
     Indication: NON-SMALL CELL LUNG CANCER
     Dosage: ACTUAL DOSE: 4275 MG
     Route: 065
     Dates: start: 20100211
  3. PEMETREXED [Suspect]
     Dosage: FORM: VIAL
     Route: 065
  4. CISPLATIN [Suspect]
     Indication: NON-SMALL CELL LUNG CANCER
     Dosage: ACTUAL DOSE: 642 MG
     Route: 065
     Dates: start: 20100211
  5. IBUPROFEN [Concomitant]
  6. LACTULOSE [Concomitant]
     Dates: start: 20100203, end: 20100208
  7. FOLIC ACID [Concomitant]
     Dates: start: 20100205
  8. VITAMIN B-12 [Concomitant]
     Dates: start: 20100205, end: 20100205
  9. TARGIN [Concomitant]
     Dates: start: 20100204
  10. ZOPICLON [Concomitant]
     Dates: start: 20100207, end: 20100207
  11. DEXAMETHASONE [Concomitant]
     Dates: start: 20100210, end: 20100212
  12. KEVATRIL [Concomitant]
     Dates: start: 20100211, end: 20100211
  13. LACTULOSE [Concomitant]
     Dates: start: 20100224

REACTIONS (1)
  - HYPERKALAEMIA [None]
